FAERS Safety Report 5443979-1 (Version None)
Quarter: 2007Q3

REPORT INFORMATION
  Report Type: 
  Country: None (occurrence: None)
  Receive Date: 20070731
  Receipt Date: 20070606
  Transmission Date: 20080115
  Serious: No
  Sender: FDA-Public Use
  Company Number: US200706001399

PATIENT
  Age: 54 Year
  Sex: Female

DRUGS (7)
  1. BYETTA [Suspect]
     Indication: TYPE 2 DIABETES MELLITUS
     Dosage: 10 UG, 2/D, SUBCUTANEOUS   5 UG, 2/D, SQ   5 UG, EACH EVENING, SQ   10 UG, EACH MORNING, SQ
     Route: 058
     Dates: start: 20060101, end: 20060101
  2. BYETTA [Suspect]
     Indication: TYPE 2 DIABETES MELLITUS
     Dosage: 10 UG, 2/D, SUBCUTANEOUS   5 UG, 2/D, SQ   5 UG, EACH EVENING, SQ   10 UG, EACH MORNING, SQ
     Route: 058
     Dates: start: 20060101, end: 20061101
  3. BYETTA [Suspect]
     Indication: TYPE 2 DIABETES MELLITUS
     Dosage: 10 UG, 2/D, SUBCUTANEOUS   5 UG, 2/D, SQ   5 UG, EACH EVENING, SQ   10 UG, EACH MORNING, SQ
     Route: 058
     Dates: start: 20061101
  4. BYETTA [Suspect]
     Indication: TYPE 2 DIABETES MELLITUS
     Dosage: 10 UG, 2/D, SUBCUTANEOUS   5 UG, 2/D, SQ   5 UG, EACH EVENING, SQ   10 UG, EACH MORNING, SQ
     Route: 058
     Dates: start: 20061101
  5. GLUCOPHAGE [Concomitant]
  6. PRANDIN (DEFLAZACORT) [Concomitant]
  7. AVANDIA [Concomitant]

REACTIONS (6)
  - BLOOD GLUCOSE DECREASED [None]
  - HYPERHIDROSIS [None]
  - INCREASED APPETITE [None]
  - NAUSEA [None]
  - PALPITATIONS [None]
  - VOMITING [None]
